FAERS Safety Report 16464779 (Version 2)
Quarter: 2019Q4

REPORT INFORMATION
  Report Type: Report from Study
  Country: None (occurrence: NL)
  Receive Date: 20190621
  Receipt Date: 20191127
  Transmission Date: 20200122
  Serious: Yes (Hospitalization, Other)
  Sender: FDA-Public Use
  Company Number: NL-ABBVIE-19S-114-2654658-00

PATIENT
  Age: 80 Year
  Sex: Female
  Weight: 49.6 kg

DRUGS (8)
  1. MOVICOLON [Concomitant]
     Active Substance: POLYETHYLENE GLYCOL 3350\POTASSIUM CHLORIDE\SODIUM BICARBONATE\SODIUM CHLORIDE
     Indication: PRODUCT USED FOR UNKNOWN INDICATION
  2. QUETIAPINE. [Concomitant]
     Active Substance: QUETIAPINE
     Indication: HALLUCINATION
  3. LEVODOPA/CARBIDOPA RETARD [Concomitant]
     Active Substance: CARBIDOPA\LEVODOPA
     Indication: PARKINSON^S DISEASE
     Route: 048
  4. DUODOPA [Suspect]
     Active Substance: CARBIDOPA\LEVODOPA
     Indication: PARKINSON^S DISEASE
     Dosage: CD WAS REDUCED BY 0.2 TO 4.8 ML/HOUR.
     Route: 050
     Dates: start: 20190128, end: 2019
  5. DUODOPA [Suspect]
     Active Substance: CARBIDOPA\LEVODOPA
     Dosage: MD: 11.8, CD: 4.8, ED: 3.0
     Route: 050
     Dates: start: 2019
  6. IRON SUPLLEMENTATION [Concomitant]
     Indication: PRODUCT USED FOR UNKNOWN INDICATION
  7. MACROGOL [Concomitant]
     Active Substance: POLYETHYLENE GLYCOLS
     Indication: ABNORMAL FAECES
  8. SYMMETREL [Concomitant]
     Active Substance: AMANTADINE HYDROCHLORIDE
     Indication: PARKINSON^S DISEASE

REACTIONS (12)
  - Stoma site haemorrhage [Recovered/Resolved]
  - Weight decreased [Not Recovered/Not Resolved]
  - Stoma site pain [Recovered/Resolved]
  - Learning disorder [Not Recovered/Not Resolved]
  - Abnormal faeces [Recovered/Resolved]
  - Hallucination [Not Recovered/Not Resolved]
  - Stoma site discharge [Recovered/Resolved]
  - Internal injury [Recovered/Resolved]
  - Memory impairment [Not Recovered/Not Resolved]
  - Muscle rigidity [Not Recovered/Not Resolved]
  - Dyskinesia [Not Recovered/Not Resolved]
  - Fatigue [Not Recovered/Not Resolved]

NARRATIVE: CASE EVENT DATE: 2019
